FAERS Safety Report 10025923 (Version 1)
Quarter: 2014Q1

REPORT INFORMATION
  Report Type: Spontaneous
  Country: JP (occurrence: None)
  Receive Date: 20140314
  Receipt Date: 20140314
  Transmission Date: 20141002
  Serious: Yes (Disabling, Congenital Anomaly)
  Sender: FDA-Public Use
  Company Number: B0848877A

PATIENT
  Sex: 0

DRUGS (2)
  1. PAROXETINE [Suspect]
     Indication: ANXIETY DISORDER
     Route: 064
  2. FLUTOPRAZEPAM [Suspect]
     Indication: ANXIETY DISORDER
     Route: 064

REACTIONS (2)
  - Syndactyly [None]
  - Maternal drugs affecting foetus [None]
